FAERS Safety Report 5032200-4 (Version None)
Quarter: 2006Q2

REPORT INFORMATION
  Report Type: 
  Country: None (occurrence: None)
  Receive Date: 20060619
  Receipt Date: 20060613
  Transmission Date: 20061013
  Serious: Yes (Other)
  Sender: FDA-Public Use
  Company Number: 2006041936

PATIENT
  Sex: Female
  Weight: 66.6788 kg

DRUGS (8)
  1. CELEBREX [Suspect]
     Indication: SPINAL OSTEOARTHRITIS
     Dosage: 200 MG (200 MG, 1 IN 1 D)
     Dates: end: 20060301
  2. LIPITOR [Suspect]
     Indication: BLOOD CHOLESTEROL INCREASED
     Dosage: 10 MG (10 MG, 1 IN 1 D)
     Dates: start: 20050101
  3. LYRICA [Suspect]
     Indication: SCIATICA
     Dosage: 50 MG (50 MG, 1 IN 1)
  4. ZOLOFT [Suspect]
     Indication: ANXIETY
     Dosage: 100 MG (100 MG, 1 IN 1 D)
  5. TRAZODONE HCL [Concomitant]
  6. NEXIUM [Concomitant]
  7. VICODIN [Concomitant]
  8. ZOLOFT [Concomitant]

REACTIONS (6)
  - ARTHRALGIA [None]
  - BACK PAIN [None]
  - DEEP VEIN THROMBOSIS [None]
  - POST PROCEDURAL COMPLICATION [None]
  - SYNOVIAL CYST [None]
  - THROMBOSIS [None]
